FAERS Safety Report 4407601-5 (Version None)
Quarter: 2004Q3

REPORT INFORMATION
  Report Type: 
  Country: None (occurrence: None)
  Receive Date: 20040721
  Receipt Date: 20040709
  Transmission Date: 20050211
  Serious: Yes (Disabling)
  Sender: FDA-Public Use
  Company Number: NSADSS2002032978

PATIENT
  Age: 53 Year
  Sex: Male
  Weight: 70 kg

DRUGS (2)
  1. OFLOXACIN [Suspect]
     Indication: PROSTATITIS
     Dosage: 400 MG, ORAL
     Route: 048
     Dates: start: 20020601, end: 20020614
  2. OFLOXACIN [Suspect]
     Indication: URINARY TRACT INFECTION
     Dosage: 400 MG, ORAL
     Route: 048
     Dates: start: 20020601, end: 20020614

REACTIONS (8)
  - ARTHRALGIA [None]
  - FIBROMATOSIS [None]
  - MYALGIA [None]
  - NODULE [None]
  - PAIN IN EXTREMITY [None]
  - PHLEBITIS [None]
  - REFLEX SYMPATHETIC DYSTROPHY [None]
  - SUPERINFECTION [None]
